FAERS Safety Report 4555398-0 (Version None)
Quarter: 2005Q1

REPORT INFORMATION
  Report Type: 
  Country: None (occurrence: None)
  Receive Date: 20041228
  Receipt Date: 20031104
  Transmission Date: 20050727
  Serious: Yes (Hospitalization)
  Sender: FDA-Public Use
  Company Number: PHEH2003US09763

PATIENT
  Age: 64 Year
  Sex: Male
  Weight: 74.4 kg

DRUGS (8)
  1. AREDIA [Suspect]
     Indication: BONE LESION
     Dosage: 90 MG, QMON, INFUSION
     Dates: start: 20030918, end: 20031016
  2. LEVOXYL [Concomitant]
  3. TOPROL-XL [Concomitant]
  4. ACETYLSALICYLIC ACID [Concomitant]
  5. TYLENOL PM [Concomitant]
  6. FOLIC ACID [Concomitant]
  7. VITAMIN C [Concomitant]
  8. VITAMIN E [Concomitant]

REACTIONS (5)
  - CHILLS [None]
  - DIARRHOEA [None]
  - NAUSEA [None]
  - PYREXIA [None]
  - VOMITING [None]
